FAERS Safety Report 4455395-X (Version None)
Quarter: 2004Q3

REPORT INFORMATION
  Report Type: 
  Country: None (occurrence: None)
  Receive Date: 20040830
  Receipt Date: 20040421
  Transmission Date: 20050211
  Serious: No
  Sender: FDA-Public Use
  Company Number: 205328

PATIENT
  Sex: Male

DRUGS (4)
  1. XOLAIR [Suspect]
     Indication: ASTHMA
     Dosage: 375 MG,Q2W,SUBCUTANEOUS
     Route: 058
     Dates: start: 20031229
  2. XOLAIR [Suspect]
     Indication: ASTHMA
     Dosage: 375 MG,Q2W,SUBCUTANEOUS
     Route: 058
     Dates: start: 20040113
  3. STEROIDS (STEROIDS NOS) [Concomitant]
  4. ADVAIR DISKUS [Concomitant]

REACTIONS (1)
  - INJECTION SITE PIGMENTATION CHANGES [None]
